FAERS Safety Report 9747267 (Version 1)
Quarter: 2013Q4

REPORT INFORMATION
  Report Type: Spontaneous
  Country: JP (occurrence: JP)
  Receive Date: 20131212
  Receipt Date: 20131212
  Transmission Date: 20140711
  Serious: Yes (Hospitalization)
  Sender: FDA-Public Use
  Company Number: JP-009507513-1312JPN004168

PATIENT
  Age: 75 Year
  Sex: Male

DRUGS (13)
  1. JANUVIA TABLETS 50MG [Suspect]
     Indication: TYPE 2 DIABETES MELLITUS
     Dosage: 50 MG, QD
     Route: 048
     Dates: start: 2013, end: 201311
  2. ETIZOLAM [Concomitant]
     Dosage: UNK
     Route: 048
  3. CERNILTON [Concomitant]
     Dosage: UNK
     Route: 048
  4. ARTIST [Concomitant]
     Dosage: UNK
     Route: 048
  5. AMLODIPINE [Concomitant]
     Dosage: UNK
  6. HARNAL [Concomitant]
     Dosage: UNK
     Route: 048
  7. MIYA BM [Concomitant]
     Route: 048
  8. PANTOSIN [Concomitant]
     Dosage: UNK
     Route: 065
  9. MEXITIL [Concomitant]
     Dosage: UNK
     Route: 065
  10. CLEANAL [Concomitant]
     Dosage: UNK
     Route: 048
  11. CARBOCYSTEINE [Concomitant]
     Dosage: UNK
     Route: 065
  12. METHYCOBAL [Concomitant]
     Dosage: UNK
     Route: 065
  13. HOKUNALIN [Concomitant]
     Dosage: UNK
     Route: 061

REACTIONS (1)
  - Interstitial lung disease [Recovering/Resolving]
